FAERS Safety Report 18225561 (Version 1)
Quarter: 2020Q3

REPORT INFORMATION
  Report Type: Spontaneous
  Country: JP (occurrence: JP)
  Receive Date: 20200903
  Receipt Date: 20200903
  Transmission Date: 20201103
  Serious: Yes (Death, Other)
  Sender: FDA-Public Use
  Company Number: JP-CHEPLA-C20202514

PATIENT
  Sex: Male

DRUGS (8)
  1. DENOSINE FOR I.V.INFUSION 500MG [Suspect]
     Active Substance: GANCICLOVIR SODIUM
     Dosage: 500 MG
     Route: 041
  2. FLUCONAZOLE. [Concomitant]
     Active Substance: FLUCONAZOLE
     Route: 048
  3. ALBUMIN [Concomitant]
     Active Substance: ALBUMIN HUMAN
     Route: 065
  4. PREDONINE [Concomitant]
     Active Substance: PREDNISOLONE
     Route: 065
  5. VALIXA TABLETS 450MG [Suspect]
     Active Substance: VALGANCICLOVIR HYDROCHLORIDE
     Indication: TRANSPLANT
     Dosage: 900 MG, QD
     Route: 048
  6. VORICONAZOLE. [Concomitant]
     Active Substance: VORICONAZOLE
     Route: 065
  7. PROGRAF [Concomitant]
     Active Substance: TACROLIMUS
     Route: 048
  8. PREVYMIS [Concomitant]
     Active Substance: LETERMOVIR
     Route: 065

REACTIONS (3)
  - Death [Fatal]
  - Lymphocyte count decreased [Unknown]
  - Platelet count decreased [Unknown]
